FAERS Safety Report 16841939 (Version 1)
Quarter: 2019Q3

REPORT INFORMATION
  Report Type: Report from Study
  Country: CO (occurrence: CO)
  Receive Date: 20190923
  Receipt Date: 20190923
  Transmission Date: 20191005
  Serious: Yes (Disabling, Other)
  Sender: FDA-Public Use
  Company Number: PHHY2018CO093277

PATIENT
  Age: 41 Year
  Sex: Female
  Weight: 65 kg

DRUGS (9)
  1. GILENYA [Suspect]
     Active Substance: FINGOLIMOD HYDROCHLORIDE
     Dosage: 0.5 MG, UNK (EVERY 3 DAYS)
     Route: 048
     Dates: start: 201901
  2. GILENYA [Suspect]
     Active Substance: FINGOLIMOD HYDROCHLORIDE
     Indication: MULTIPLE SCLEROSIS
     Dosage: 0.5 MG, QD
     Route: 048
     Dates: start: 20160219
  3. GILENYA [Suspect]
     Active Substance: FINGOLIMOD HYDROCHLORIDE
     Dosage: 0.5 MG, UNK
     Route: 065
     Dates: start: 201811, end: 201812
  4. LIORESAL [Suspect]
     Active Substance: BACLOFEN
     Dosage: 2 DF, TID
     Route: 065
  5. FAMPRIDINE [Concomitant]
     Active Substance: DALFAMPRIDINE
     Indication: MOVEMENT DISORDER
     Dosage: 10 MG, BID
     Route: 065
     Dates: start: 2012
  6. GILENYA [Suspect]
     Active Substance: FINGOLIMOD HYDROCHLORIDE
     Dosage: 0.5 MG, UNK
     Route: 065
     Dates: start: 201812, end: 201901
  7. GILENYA [Suspect]
     Active Substance: FINGOLIMOD HYDROCHLORIDE
     Dosage: 0.5 MG, (EVERY 7 DAYS) UNK
     Route: 048
     Dates: start: 201903
  8. LIORESAL [Suspect]
     Active Substance: BACLOFEN
     Indication: DYSKINESIA
     Dosage: 10 MG, QID
     Route: 065
  9. BETAHISTINE [Concomitant]
     Active Substance: BETAHISTINE
     Indication: VERTIGO
     Dosage: 16 MG, BID
     Route: 065
     Dates: start: 2015

REACTIONS (31)
  - Limb injury [Recovered/Resolved with Sequelae]
  - Gait disturbance [Recovered/Resolved with Sequelae]
  - Muscle spasms [Unknown]
  - Bone density decreased [Unknown]
  - Inappropriate schedule of product administration [Not Recovered/Not Resolved]
  - Dizziness [Recovered/Resolved]
  - Dysstasia [Unknown]
  - Fatigue [Unknown]
  - Thyroid mass [Unknown]
  - Cerebral infarction [Unknown]
  - Memory impairment [Recovered/Resolved]
  - Atrophy [Unknown]
  - Mobility decreased [Not Recovered/Not Resolved]
  - Facial paralysis [Recovered/Resolved]
  - Dysphagia [Recovered/Resolved]
  - Limb discomfort [Not Recovered/Not Resolved]
  - Movement disorder [Not Recovered/Not Resolved]
  - Speech disorder [Recovered/Resolved]
  - Gait disturbance [Not Recovered/Not Resolved]
  - Urinary incontinence [Not Recovered/Not Resolved]
  - Monoplegia [Unknown]
  - Cerebrovascular disorder [Unknown]
  - Encephalomalacia [Unknown]
  - Dyskinesia [Recovered/Resolved]
  - Labial tie [Unknown]
  - White matter lesion [Unknown]
  - Facial paralysis [Recovering/Resolving]
  - Arteriosclerosis [Unknown]
  - Renal disorder [Not Recovered/Not Resolved]
  - Headache [Unknown]
  - Discomfort [Not Recovered/Not Resolved]

NARRATIVE: CASE EVENT DATE: 20190228
